FAERS Safety Report 14316833 (Version 1)
Quarter: 2017Q4

REPORT INFORMATION
  Report Type: Spontaneous
  Country: US (occurrence: US)
  Receive Date: 20171222
  Receipt Date: 20171222
  Transmission Date: 20180321
  Serious: No
  Sender: FDA-Public Use
  Company Number: US-BIOGEN-2015BI104062

PATIENT
  Age: 41 Year
  Sex: Male
  Weight: 72.56 kg

DRUGS (11)
  1. TECFIDERA [Suspect]
     Active Substance: DIMETHYL FUMARATE
     Indication: MULTIPLE SCLEROSIS
     Route: 048
     Dates: start: 20150706
  2. COLACE [Concomitant]
     Active Substance: DOCUSATE SODIUM
     Indication: PRODUCT USED FOR UNKNOWN INDICATION
     Route: 065
  3. AMPYRA [Concomitant]
     Active Substance: DALFAMPRIDINE
     Route: 048
  4. GILENYA [Concomitant]
     Active Substance: FINGOLIMOD HYDROCHLORIDE
     Indication: PRODUCT USED FOR UNKNOWN INDICATION
     Route: 065
  5. TECFIDERA [Suspect]
     Active Substance: DIMETHYL FUMARATE
     Route: 048
  6. VITAMIN D3 [Concomitant]
     Active Substance: CHOLECALCIFEROL
     Indication: PRODUCT USED FOR UNKNOWN INDICATION
     Route: 065
  7. AMPYRA [Concomitant]
     Active Substance: DALFAMPRIDINE
     Indication: GAIT DISTURBANCE
     Route: 065
     Dates: start: 201312
  8. CHOLESTYRAMINE LIGHT [Concomitant]
     Active Substance: CHOLESTYRAMINE
     Indication: PRODUCT USED FOR UNKNOWN INDICATION
     Route: 065
  9. ASPIRIN LOW DOSE [Concomitant]
     Active Substance: ASPIRIN
     Indication: PRODUCT USED FOR UNKNOWN INDICATION
     Route: 065
  10. PROZAC [Concomitant]
     Active Substance: FLUOXETINE HYDROCHLORIDE
     Indication: PRODUCT USED FOR UNKNOWN INDICATION
     Route: 065
  11. METHYLPHENIDATE HCL ER [Concomitant]
     Indication: PRODUCT USED FOR UNKNOWN INDICATION
     Route: 065

REACTIONS (15)
  - Gait disturbance [Recovered/Resolved]
  - Fear [Unknown]
  - Faeces discoloured [Unknown]
  - Depressed mood [Unknown]
  - Motor dysfunction [Unknown]
  - Pain in extremity [Unknown]
  - Mood altered [Unknown]
  - Abdominal pain [Not Recovered/Not Resolved]
  - Musculoskeletal disorder [Unknown]
  - Multiple sclerosis relapse [Not Recovered/Not Resolved]
  - Tremor [Unknown]
  - Impaired self-care [Not Recovered/Not Resolved]
  - Feeling hot [Unknown]
  - Diarrhoea [Not Recovered/Not Resolved]
  - Vomiting [Not Recovered/Not Resolved]

NARRATIVE: CASE EVENT DATE: 20150720
